FAERS Safety Report 20658159 (Version 1)
Quarter: 2022Q1

REPORT INFORMATION
  Report Type: Spontaneous
  Country: GB (occurrence: GB)
  Receive Date: 20220331
  Receipt Date: 20220331
  Transmission Date: 20220424
  Serious: Yes (Other)
  Sender: FDA-Public Use
  Company Number: GB-ALXN-A202203300

PATIENT
  Sex: Male

DRUGS (5)
  1. SIMVASTATIN [Suspect]
     Active Substance: SIMVASTATIN
     Indication: Arteriosclerosis coronary artery
     Dosage: 20 MG, QHS
     Route: 065
  2. SIMVASTATIN [Suspect]
     Active Substance: SIMVASTATIN
     Indication: Coronary artery occlusion
  3. ULTOMIRIS [Suspect]
     Active Substance: RAVULIZUMAB-CWVZ
     Indication: Paroxysmal nocturnal haemoglobinuria
     Dosage: UNK, Q2W
     Route: 065
     Dates: start: 20211104
  4. ULTOMIRIS [Suspect]
     Active Substance: RAVULIZUMAB-CWVZ
     Dosage: 3300 MG, EVERY 8 WEEKS
     Route: 042
     Dates: start: 20211108
  5. PHENOXYMETHYLPENICILLIN. [Concomitant]
     Indication: Infection prophylaxis
     Dosage: 250 MG, BID
     Route: 065

REACTIONS (3)
  - Arteriosclerosis coronary artery [Unknown]
  - Coronary artery occlusion [Unknown]
  - Chromaturia [Unknown]
